FAERS Safety Report 4353296-9 (Version None)
Quarter: 2004Q2

REPORT INFORMATION
  Report Type: 
  Country: None (occurrence: None)
  Receive Date: 20040429
  Receipt Date: 20030904
  Transmission Date: 20050107
  Serious: Yes (Other)
  Sender: FDA-Public Use
  Company Number: 2003121144

PATIENT
  Age: 51 Year
  Sex: Female
  Weight: 140.6151 kg

DRUGS (8)
  1. LIPITOR [Suspect]
     Indication: BLOOD CHOLESTEROL
     Dosage: DAILY, ORAL
     Route: 048
     Dates: start: 20030525, end: 20030601
  2. VICODIN [Concomitant]
  3. METHOCARBAMOL [Concomitant]
  4. CITALOPRAM HYDROBROMIDE (CITALOPRAM HYDROBROMIDE) [Concomitant]
  5. TEMAZEPAM [Concomitant]
  6. GLIPIZIDE [Concomitant]
  7. LISINOPRIL [Concomitant]
  8. INSULIN GLARGINE (INSULIN GLARGINE) [Concomitant]

REACTIONS (9)
  - BLOOD PRESSURE INCREASED [None]
  - CARDIOMYOPATHY [None]
  - CONTUSION [None]
  - DIARRHOEA [None]
  - DIZZINESS [None]
  - HEPATIC ENZYME INCREASED [None]
  - RHABDOMYOLYSIS [None]
  - VOMITING [None]
  - WEIGHT DECREASED [None]
